FAERS Safety Report 26083393 (Version 2)
Quarter: 2025Q4

REPORT INFORMATION
  Report Type: Spontaneous
  Country: JP (occurrence: JP)
  Receive Date: 20251124
  Receipt Date: 20251212
  Transmission Date: 20260117
  Serious: Yes (Other)
  Sender: MERCK SHARP & DOHME LLC
  Company Number: JP-009507513-2352183

PATIENT
  Age: 6 Decade
  Sex: Male

DRUGS (2)
  1. PEMBROLIZUMAB [Suspect]
     Active Substance: PEMBROLIZUMAB
     Indication: Renal cancer stage IV
     Dates: start: 20250422
  2. LENVATINIB [Suspect]
     Active Substance: LENVATINIB
     Indication: Renal cancer stage IV
     Dosage: STARTED AT 14MG WITH DOSE REDUCTION.
     Dates: start: 20250422

REACTIONS (10)
  - Myelosuppression [Unknown]
  - Thyroid disorder [Not Recovered/Not Resolved]
  - Abdominal pain upper [Recovering/Resolving]
  - Diarrhoea [Not Recovered/Not Resolved]
  - Headache [Recovered/Resolved]
  - Nausea [Unknown]
  - Haematoma [Recovering/Resolving]
  - Decreased appetite [Recovered/Resolved]
  - Constipation [Not Recovered/Not Resolved]
  - Anaemia [Unknown]

NARRATIVE: CASE EVENT DATE: 20250101
